FAERS Safety Report 20987105 (Version 1)
Quarter: 2022Q2

REPORT INFORMATION
  Report Type: Report from Study
  Country: US (occurrence: US)
  Receive Date: 20220621
  Receipt Date: 20220621
  Transmission Date: 20220721
  Serious: Yes (Other)
  Sender: FDA-Public Use
  Company Number: US-REGENERON PHARMACEUTICALS, INC.-2022-079895

PATIENT
  Sex: Female

DRUGS (1)
  1. PRALUENT [Suspect]
     Active Substance: ALIROCUMAB
     Indication: Product used for unknown indication
     Dosage: 75 MG, Q2W
     Route: 065

REACTIONS (7)
  - Bacteraemia [Unknown]
  - Amnesia [Unknown]
  - Hypoacusis [Unknown]
  - COVID-19 [Unknown]
  - Urinary tract infection [Unknown]
  - Product dose omission issue [Unknown]
  - Product delivery mechanism issue [Unknown]

NARRATIVE: CASE EVENT DATE: 20210101
